FAERS Safety Report 5735948-9 (Version None)
Quarter: 2008Q2

REPORT INFORMATION
  Report Type: 
  Country: None (occurrence: None)
  Receive Date: 20080509
  Receipt Date: 20080428
  Transmission Date: 20081010
  Serious: Yes (Other)
  Sender: FDA-Public Use
  Company Number: 2008010746

PATIENT
  Age: 65 Year
  Weight: 68.0396 kg

DRUGS (1)
  1. COOL MINT LISTERINE POCKETPAKS (NO ACTIVE INGREDIENT) [Suspect]
     Indication: DENTAL DISORDER PROPHYLAXIS
     Dosage: 1 STRIP, 2 TO 3 X A DAY, ORAL
     Route: 048
     Dates: start: 20080109, end: 20080425

REACTIONS (1)
  - RASH [None]
